FAERS Safety Report 17943073 (Version 1)
Quarter: 2020Q2

REPORT INFORMATION
  Report Type: Spontaneous
  Country: US (occurrence: US)
  Receive Date: 20200625
  Receipt Date: 20200625
  Transmission Date: 20200714
  Serious: Yes (Other)
  Sender: FDA-Public Use
  Company Number: None

PATIENT
  Age: 62 Year
  Sex: Female
  Weight: 53 kg

DRUGS (1)
  1. ZINPLAVA [Suspect]
     Active Substance: BEZLOTOXUMAB
     Indication: CLOSTRIDIUM DIFFICILE COLITIS
     Dosage: ?          OTHER FREQUENCY:1 TIME;?
     Route: 017
     Dates: start: 20200616, end: 20200616

REACTIONS (5)
  - Labile blood pressure [None]
  - Cough [None]
  - Dyspnoea [None]
  - Headache [None]
  - Oedema peripheral [None]

NARRATIVE: CASE EVENT DATE: 20200620
